FAERS Safety Report 25883454 (Version 2)
Quarter: 2025Q4

REPORT INFORMATION
  Report Type: Spontaneous
  Country: US (occurrence: US)
  Receive Date: 20251006
  Receipt Date: 20251022
  Transmission Date: 20260119
  Serious: Yes (Death, Other)
  Sender: BIOVITRUM
  Company Number: US-BIOVITRUM-2025-US-013471

PATIENT
  Sex: Female

DRUGS (1)
  1. GAMIFANT [Suspect]
     Active Substance: EMAPALUMAB-LZSG
     Indication: Familial haemophagocytic lymphohistiocytosis
     Dosage: EVERY 3-4 DAYS, THE PATIENT HAD RECEIVED THEIR LAST PLANNED DOSE ON A THURSDAY
     Route: 042
     Dates: start: 20250822

REACTIONS (2)
  - Serum ferritin abnormal [Unknown]
  - Death [Fatal]
